FAERS Safety Report 7445316-X (Version None)
Quarter: 2011Q2

REPORT INFORMATION
  Report Type: 
  Country: None (occurrence: None)
  Receive Date: 20110429
  Receipt Date: 20110415
  Transmission Date: 20111010
  Serious: Yes (Hospitalization)
  Sender: FDA-Public Use
  Company Number: JP-CELGENEUS-TAJPN-11-0006

PATIENT
  Sex: Female
  Weight: 67 kg

DRUGS (19)
  1. GASMOTIN [Concomitant]
     Dosage: 15 MILLIGRAM
     Route: 048
     Dates: start: 20101201
  2. KYTRIL [Concomitant]
     Dosage: 4 MILLIGRAM
     Route: 048
     Dates: start: 20101201, end: 20101226
  3. ABRAXANE [Suspect]
     Indication: BREAST CANCER METASTATIC
     Dosage: 444 MILLIGRAM
     Route: 041
     Dates: start: 20101130, end: 20101221
  4. ACTOS [Concomitant]
     Dosage: 30 MILLIGRAM
     Route: 048
     Dates: start: 20101124
  5. CELECOX [Concomitant]
     Dosage: 400 MILLIGRAM
     Route: 048
     Dates: start: 20101124
  6. GASTER [Concomitant]
     Dosage: 40 MILLIGRAM
     Route: 051
     Dates: start: 20101130, end: 20101221
  7. NEUTROGIN [Concomitant]
     Route: 065
     Dates: start: 20101229
  8. ALOXI [Concomitant]
     Route: 051
     Dates: start: 20101130, end: 20101221
  9. EPALRESTAT [Concomitant]
     Dosage: 150 MILLIGRAM
     Route: 048
     Dates: start: 20101203
  10. RADICUT [Concomitant]
     Dosage: 60 MILLIGRAM
     Route: 065
     Dates: start: 20101221
  11. PARIET [Concomitant]
     Dosage: 10 MILLIGRAM
     Route: 048
     Dates: start: 20101201
  12. MAGLAX [Concomitant]
     Indication: CONSTIPATION
     Route: 065
     Dates: start: 20101205
  13. DECADRON [Concomitant]
     Dosage: 4-8ML
     Route: 051
     Dates: start: 20101130, end: 20101221
  14. ZOMETA [Concomitant]
     Indication: BREAST CANCER METASTATIC
     Dosage: 4 MILLIGRAM
     Route: 041
     Dates: start: 20101130, end: 20101221
  15. NESINA [Concomitant]
     Route: 065
  16. ALOSENN [Concomitant]
     Indication: CONSTIPATION
     Route: 065
     Dates: start: 20101205
  17. CATACLOT [Concomitant]
     Dosage: 160 MILLIGRAM
     Route: 065
     Dates: start: 20101221
  18. EMEND [Concomitant]
     Dosage: 80-125MG
     Route: 048
     Dates: start: 20101130, end: 20101223
  19. MELBIN [Concomitant]
     Dosage: 750 MILLIGRAM
     Route: 048
     Dates: start: 20101203

REACTIONS (5)
  - URINARY RETENTION [None]
  - MOVEMENT DISORDER [None]
  - PARAPLEGIA [None]
  - INTESTINAL FUNCTIONAL DISORDER [None]
  - DYSCHEZIA [None]
